FAERS Safety Report 13059738 (Version 5)
Quarter: 2017Q2

REPORT INFORMATION
  Report Type: Report from Study
  Country: US (occurrence: US)
  Receive Date: 20161223
  Receipt Date: 20170607
  Transmission Date: 20170830
  Serious: Yes (Other)
  Sender: FDA-Public Use
  Company Number: US-BRISTOL-MYERS SQUIBB COMPANY-BMS-2016-108618

PATIENT
  Age: 70 Year
  Sex: Female

DRUGS (1)
  1. NIVOLUMAB [Suspect]
     Active Substance: NIVOLUMAB
     Indication: LUNG NEOPLASM MALIGNANT
     Dosage: 186 MG, Q2WK
     Route: 042
     Dates: start: 20150918

REACTIONS (12)
  - Energy increased [Unknown]
  - Arthralgia [Not Recovered/Not Resolved]
  - Muscle spasms [Recovering/Resolving]
  - Insomnia [Unknown]
  - Neuropathy peripheral [Unknown]
  - Carcinoembryonic antigen increased [Unknown]
  - Cough [Unknown]
  - Rash [Unknown]
  - Depression [Unknown]
  - Abdominal pain upper [Unknown]
  - Colitis microscopic [Unknown]
  - Fatigue [Unknown]

NARRATIVE: CASE EVENT DATE: 20161020
